FAERS Safety Report 4625711-4 (Version None)
Quarter: 2005Q1

REPORT INFORMATION
  Report Type: 
  Country: None (occurrence: None)
  Receive Date: 20050330
  Receipt Date: 20050317
  Transmission Date: 20050727
  Serious: Yes (Disabling)
  Sender: FDA-Public Use
  Company Number: 2005045568

PATIENT
  Age: 70 Year
  Sex: Male

DRUGS (5)
  1. LIPITOR [Suspect]
     Indication: ILL-DEFINED DISORDER
     Dosage: 10 (DAILY), ORAL
     Route: 048
     Dates: start: 20040310, end: 20050313
  2. AZOSEMIDE (AZOSEMIDE) [Suspect]
     Indication: ILL-DEFINED DISORDER
     Dosage: 60 MG (DAILY), ORAL
     Route: 048
     Dates: end: 20050313
  3. ASPIRIN [Concomitant]
  4. TICLOPIDINE (TICLOPRIDINE) [Concomitant]
  5. INSULIN ASPART (INSULIN ASPART) [Concomitant]

REACTIONS (1)
  - RETINAL HAEMORRHAGE [None]
